FAERS Safety Report 6679712-5 (Version None)
Quarter: 2010Q1

REPORT INFORMATION
  Report Type: 
  Country: None (occurrence: None)
  Receive Date: 20100309
  Receipt Date: 20100329
  Transmission Date: 20100710
  Serious: Yes (Hospitalization, Other)
  Sender: FDA-Public Use
  Company Number: SPV1-2010-00591

PATIENT
  Age: 57 Year
  Sex: Male

DRUGS (8)
  1. VYVANSE [Suspect]
     Indication: ATTENTION DEFICIT/HYPERACTIVITY DISORDER
     Dosage: 70 MG, 1X/DAY:QD, ORAL
     Route: 048
     Dates: start: 20091001
  2. FOSAMAX [Concomitant]
  3. ETIDRONATE DISODIUM (ETIDRONATE DISODIUM) TABLET [Concomitant]
  4. FORTEO (TERIPARATIDE) INJECTION [Concomitant]
  5. OXYCODONE (OXYCODONE) TABLET [Concomitant]
  6. CLONAZEPAM [Concomitant]
  7. PROZAC	/00724401/ (FLUOXETINE) TABLET [Concomitant]
  8. LISINOPRIL [Concomitant]

REACTIONS (7)
  - BLOOD PRESSURE SYSTOLIC INCREASED [None]
  - DRUG EFFECT DECREASED [None]
  - DRUG EFFECT INCREASED [None]
  - FATIGUE [None]
  - IRRITABILITY [None]
  - PULMONARY OEDEMA [None]
  - RIB FRACTURE [None]
